FAERS Safety Report 6529480-2 (Version None)
Quarter: 2010Q1

REPORT INFORMATION
  Report Type: 
  Country: None (occurrence: None)
  Receive Date: 20100107
  Receipt Date: 20091103
  Transmission Date: 20100710
  Serious: Yes (Other)
  Sender: FDA-Public Use
  Company Number: PHEH2009US18675

PATIENT
  Sex: Female

DRUGS (1)
  1. RITALIN [Suspect]

REACTIONS (3)
  - AFFECT LABILITY [None]
  - EMOTIONAL DISORDER [None]
  - SUICIDAL BEHAVIOUR [None]
